FAERS Safety Report 13292422 (Version 3)
Quarter: 2017Q1

REPORT INFORMATION
  Report Type: Spontaneous
  Country: US (occurrence: US)
  Receive Date: 20170303
  Receipt Date: 20170328
  Transmission Date: 20170428
  Serious: Yes (Other)
  Sender: FDA-Public Use
  Company Number: US-MALLINCKRODT-T201700755

PATIENT
  Age: 40 Year
  Sex: Male

DRUGS (6)
  1. GABLOFEN [Suspect]
     Active Substance: BACLOFEN
     Dosage: 175 ?G, QD
     Route: 037
  2. GABLOFEN [Suspect]
     Active Substance: BACLOFEN
     Dosage: 250 ?G, QD
  3. GABLOFEN [Suspect]
     Active Substance: BACLOFEN
     Indication: MUSCLE SPASTICITY
     Dosage: 1600 ?G, QD
     Route: 037
  4. GABLOFEN [Suspect]
     Active Substance: BACLOFEN
     Indication: SPINAL CORD INJURY
     Dosage: 600 ?G, QD
     Route: 037
  5. GABLOFEN [Suspect]
     Active Substance: BACLOFEN
     Dosage: 160 ?G, QD
     Route: 037
  6. BACLOFEN. [Concomitant]
     Active Substance: BACLOFEN
     Dosage: 30 MG, QD
     Route: 048

REACTIONS (4)
  - Somnolence [Unknown]
  - Muscle spasms [Unknown]
  - Device issue [Recovered/Resolved]
  - Spinal cord injury [Unknown]

NARRATIVE: CASE EVENT DATE: 201608
